FAERS Safety Report 4950841-7 (Version None)
Quarter: 2006Q1

REPORT INFORMATION
  Report Type: 
  Country: None (occurrence: None)
  Receive Date: 20060321
  Receipt Date: 20060321
  Transmission Date: 20060701
  Serious: Yes (Other)
  Sender: FDA-Public Use
  Company Number: None

PATIENT
  Age: 59 Year
  Sex: Male
  Weight: 56.2 kg

DRUGS (2)
  1. GLYBURIDE [Suspect]
  2. SIMVASTATIN [Concomitant]

REACTIONS (1)
  - HYPOGLYCAEMIA [None]
